FAERS Safety Report 8719573 (Version 3)
Quarter: 2012Q4

REPORT INFORMATION
  Report Type: Report from Study
  Country: US (occurrence: US)
  Receive Date: 20120813
  Receipt Date: 20121009
  Transmission Date: 20130627
  Serious: Yes (Other)
  Sender: FDA-Public Use
  Company Number: US-JNJFOC-20120803480

PATIENT
  Age: 50 Year
  Sex: Female
  Weight: 111.81 kg

DRUGS (5)
  1. INFLIXIMAB, RECOMBINANT [Suspect]
     Indication: PSORIATIC ARTHROPATHY
     Dosage: first infusion
     Route: 042
     Dates: start: 20120709
  2. INFLIXIMAB, RECOMBINANT [Suspect]
     Indication: PSORIATIC ARTHROPATHY
     Dosage: 2nd infusion
     Route: 042
     Dates: start: 20120723
  3. INFLIXIMAB, RECOMBINANT [Suspect]
     Indication: PSORIASIS
     Dosage: 2nd infusion
     Route: 042
     Dates: start: 20120723
  4. INFLIXIMAB, RECOMBINANT [Suspect]
     Indication: PSORIASIS
     Dosage: first infusion
     Route: 042
     Dates: start: 20120709
  5. STEROIDS NOS [Concomitant]

REACTIONS (1)
  - Herpes zoster [Recovered/Resolved]
